FAERS Safety Report 8267658 (Version 3)
Quarter: 2013Q1

REPORT INFORMATION
  Report Type: Report from Study
  Country: KR (occurrence: KR)
  Receive Date: 20111129
  Receipt Date: 20130308
  Transmission Date: 20140127
  Serious: Yes (Life-Threatening, Hospitalization, Other)
  Sender: FDA-Public Use
  Company Number: KR-ABBOTT-11P-090-0845596-00

PATIENT
  Age: 67 Year
  Sex: Female

DRUGS (122)
  1. K-CONTIN CONTINUS [Concomitant]
     Dosage: 3600 MG DAILY
     Dates: start: 20110905, end: 20110907
  2. K-CONTIN CONTINUS [Concomitant]
     Route: 048
     Dates: end: 20110927
  3. K-CONTIN CONTINUS [Concomitant]
     Dosage: 1800 MG DAILY
     Dates: start: 20111013, end: 20111013
  4. ACTONEL [Concomitant]
     Indication: OSTEOPOROSIS PROPHYLAXIS
     Dosage: 35 MG WEEKLY
     Route: 048
     Dates: start: 20110803
  5. DAEWON MEGESTEROL ACETATE SUSPENSION [Concomitant]
     Indication: DECREASED APPETITE
     Dosage: 1 PACK
     Route: 048
     Dates: start: 20110806
  6. HANIL FLASYNIL [Concomitant]
     Indication: CLOSTRIDIUM DIFFICILE COLITIS
     Dosage: 1500 MG DAILY
     Route: 048
     Dates: start: 20110808
  7. STOGAR [Concomitant]
     Indication: PROPHYLAXIS AGAINST GASTROINTESTINAL ULCER
     Dosage: 20 MG DAILY
     Route: 048
     Dates: start: 20110809
  8. THIAMINE HCL [Concomitant]
     Indication: VITAMIN SUPPLEMENTATION
     Route: 042
     Dates: start: 20110812
  9. THIAMINE HCL [Concomitant]
     Dosage: 30 MG DAILY
     Dates: start: 20110907
  10. KCL [Concomitant]
     Indication: MINERAL SUPPLEMENTATION
     Dosage: 3G/20ML, 2 VIALS DAILY
     Dates: start: 20110812
  11. CALCIUM GLUCONATE [Concomitant]
     Indication: MINERAL SUPPLEMENTATION
     Dosage: 2G/20ML/20ML, 1 VIAL DAILY
     Dates: start: 20110812
  12. CALCIUM GLUCONATE [Concomitant]
     Dosage: 2G/20ML, 20ML, TOTAL DAILY DOSE 1 VIAL
     Route: 042
     Dates: start: 20111002, end: 20111004
  13. CALCIUM GLUCONATE [Concomitant]
     Dosage: 2G/20ML 20ML, 2 AMPOULES DAILY
     Route: 042
     Dates: start: 20111010, end: 20111011
  14. CALCIUM GLUCONATE [Concomitant]
     Dosage: 2G/20ML 20ML, 1 AMPOULE DAILY
     Route: 042
     Dates: start: 20111013, end: 20111013
  15. PHENIRAMINE [Concomitant]
     Indication: PREMEDICATION
     Dosage: 4MG/2ML 2ML
     Route: 042
     Dates: start: 20110525, end: 20110525
  16. PHENIRAMINE [Concomitant]
     Indication: CHEMOTHERAPY
     Dosage: 4MG/2ML 2ML
     Dates: start: 20111005, end: 20111005
  17. TRODOL [Concomitant]
     Indication: CANCER PAIN
     Dosage: 150 MG DAILY, 50MG/ML 1 ML
     Route: 042
     Dates: start: 20110815, end: 20110826
  18. TRODOL [Concomitant]
     Indication: B-CELL LYMPHOMA
  19. SODIUM CHLORIDE [Concomitant]
     Indication: ELECTROLYTE SUBSTITUTION THERAPY
     Dosage: 2 VIALS, 2.34G/20ML
     Route: 042
     Dates: start: 20110822, end: 20110830
  20. SODIUM CHLORIDE [Concomitant]
     Dosage: 2 VIALS, 2.34G/ML
     Route: 042
     Dates: start: 20110911, end: 20110913
  21. SODIUM CHLORIDE [Concomitant]
     Dosage: 2 VIALS, 2.34G/20ML
     Route: 042
     Dates: start: 20110822, end: 20110830
  22. SODIUM CHLORIDE [Concomitant]
     Dosage: 3 VIALS, 2.34G/20ML
     Route: 042
     Dates: start: 20110923
  23. TRIDEL [Concomitant]
     Indication: CANCER PAIN
     Dosage: 150 MG DAILY
     Route: 048
     Dates: start: 20110826, end: 20110829
  24. TRIDEL [Concomitant]
     Indication: B-CELL LYMPHOMA
  25. CENTRUM SILVER [Concomitant]
     Indication: VITAMIN SUPPLEMENTATION
     Route: 048
     Dates: start: 20110830
  26. BLOOD CELLS, PACKED HUMAN [Concomitant]
     Indication: HAEMOGLOBIN ABNORMAL
     Dosage: TWO PACK, 400CC
     Route: 042
     Dates: start: 20110915, end: 20110915
  27. PLATELETS, CONCENTRATED [Concomitant]
     Indication: PLATELET DISORDER
     Dosage: SEVEN PACK
     Route: 042
     Dates: start: 20110915, end: 20110916
  28. PLATELETS, CONCENTRATED [Concomitant]
     Dosage: EIGHT PACK
     Route: 042
     Dates: start: 20110923
  29. PLATELETS, CONCENTRATED [Concomitant]
     Dosage: TOTAL DAILY DOSE 8 PACK
     Route: 042
     Dates: start: 20110929, end: 20110929
  30. PLATELETS, CONCENTRATED [Concomitant]
     Dosage: 8 PACK
     Route: 042
     Dates: start: 20111002, end: 20111002
  31. PLATELETS, CONCENTRATED [Concomitant]
     Dosage: (PHERESIS) 1 PACK
     Route: 042
     Dates: start: 20111004, end: 20111004
  32. PLATELETS, CONCENTRATED [Concomitant]
     Dosage: 8 PACK
     Route: 042
     Dates: start: 20111010, end: 20111010
  33. PLATELETS, CONCENTRATED [Concomitant]
     Dosage: 8 PACK
     Route: 042
     Dates: start: 20111025, end: 20111025
  34. PLATELETS, CONCENTRATED [Concomitant]
     Dosage: 8 PACK
     Route: 042
     Dates: start: 20111031, end: 20111031
  35. TRIDOL [Concomitant]
     Indication: CANCER PAIN
     Dosage: TOTAL DAILY DOSE 200 MG
     Route: 042
     Dates: start: 20110924, end: 20111012
  36. TRIDOL [Concomitant]
     Indication: B-CELL LYMPHOMA
  37. TYLENOL ER [Concomitant]
     Indication: PREMEDICATION
     Route: 048
     Dates: start: 20110924, end: 20110928
  38. MASI [Concomitant]
     Indication: BLOOD MAGNESIUM DECREASED
     Dosage: 2G/20ML, 20ML, TOTAL DAILY DOSE 1 AMP
     Dates: start: 20111002, end: 20111002
  39. PANTOLOC [Concomitant]
     Indication: PROPHYLAXIS AGAINST GASTROINTESTINAL ULCER
     Route: 042
     Dates: start: 20111002, end: 20111002
  40. MEROPEN [Concomitant]
     Indication: PROPHYLAXIS
     Dosage: 500MG/V
     Route: 042
     Dates: start: 20111002, end: 20111015
  41. PHOSTEN [Concomitant]
     Indication: BLOOD POTASSIUM DECREASED
     Dosage: 136.1 MG/ML 20 ML
     Route: 042
     Dates: start: 20111004, end: 20111004
  42. DBPHARM PENTAMIDE ISETHIONATE [Concomitant]
     Indication: PNEUMOCYSTIS JIROVECII PNEUMONIA
     Route: 042
     Dates: start: 20111004, end: 20111019
  43. DBPHARM PENTAMIDE ISETHIONATE [Concomitant]
     Indication: PROPHYLAXIS
  44. LASIX [Concomitant]
     Indication: FLUID IMBALANCE
     Dosage: 20MG/2ML
     Route: 042
     Dates: start: 20111009, end: 20111009
  45. LASIX [Concomitant]
     Dosage: 20MG/2ML, 10 MG DAILY
     Route: 042
     Dates: start: 20111018, end: 20111018
  46. KALETRA TABLETS [Suspect]
     Indication: HIV INFECTION
     Route: 048
     Dates: start: 20110518, end: 20110616
  47. KALETRA TABLETS [Suspect]
     Route: 048
     Dates: start: 20110713, end: 20110728
  48. KALETRA TABLETS [Suspect]
     Route: 048
     Dates: start: 20110819, end: 20111007
  49. RALTEGRAVIR [Concomitant]
     Indication: ANTIRETROVIRAL THERAPY
     Dosage: 600 MG DAILY
     Dates: start: 20110617, end: 20110712
  50. RALTEGRAVIR [Concomitant]
     Dosage: 800 MG DAILY
     Dates: start: 20110819, end: 20111007
  51. 3TC [Concomitant]
     Indication: ANTIRETROVIRAL THERAPY
     Dosage: 300 MG DAILY
     Dates: start: 20110328, end: 20111007
  52. 3TC [Concomitant]
     Dosage: 300 MG DAILY
     Dates: start: 20110819
  53. ABACAVIR [Concomitant]
     Indication: ANTIRETROVIRAL THERAPY
     Dosage: 600 MG DAILY
     Dates: start: 20110328, end: 20110728
  54. GASTER D [Concomitant]
     Indication: GASTRIC ULCER
     Dosage: 20 MG DAILY
     Route: 048
     Dates: start: 20110518, end: 20110602
  55. GASTER D [Concomitant]
     Indication: PROPHYLAXIS AGAINST GASTROINTESTINAL ULCER
     Dosage: DAILY DOSE 40 MG
     Route: 048
     Dates: start: 20110705, end: 20110713
  56. GASTER D [Concomitant]
     Indication: GASTRIC HAEMORRHAGE
     Dosage: DAILY DOSE 40 MG
     Route: 048
     Dates: start: 20111013
  57. DIFLUCAN [Concomitant]
     Indication: ORAL CANDIDIASIS
     Dosage: 100 MG DAILY
     Route: 048
     Dates: start: 20110516, end: 20110616
  58. DIFLUCAN [Concomitant]
     Dosage: 10MG/ML 35ML
     Route: 048
     Dates: start: 20110529, end: 20110616
  59. DIFLUCAN [Concomitant]
     Dosage: 10MG/ML 35ML
     Route: 048
     Dates: start: 20110720, end: 20110720
  60. DIFLUCAN [Concomitant]
     Dosage: 10MG/ML 35ML
     Route: 048
     Dates: start: 20110810
  61. ZITHROMAX [Concomitant]
     Indication: OPPORTUNISTIC INFECTION PROPHYLAXIS
     Route: 048
     Dates: start: 20110518, end: 20110525
  62. ZITHROMAX [Concomitant]
     Route: 048
     Dates: start: 20110713, end: 20110720
  63. BEARSE [Concomitant]
     Indication: PROPHYLAXIS
     Dosage: 3 TABS DAILY
     Route: 048
     Dates: start: 20110524, end: 20110524
  64. BEARSE [Concomitant]
     Indication: DYSPEPSIA
  65. MACPERAN [Concomitant]
     Indication: PROPHYLAXIS OF NAUSEA AND VOMITING
     Dosage: 15 MG DAILY
     Route: 048
     Dates: start: 20110524, end: 20110604
  66. MACPERAN [Concomitant]
     Route: 048
     Dates: start: 20110616, end: 20110618
  67. MACPERAN [Concomitant]
     Dosage: 8.46 MG/2 ML
     Dates: start: 20111004, end: 20111004
  68. POTASSIUM CHLORIDE [Concomitant]
     Indication: PREMEDICATION
     Dosage: 40 INJ 3G/20ML
     Route: 042
     Dates: start: 20110524, end: 20110624
  69. POTASSIUM CHLORIDE [Concomitant]
     Indication: MINERAL SUPPLEMENTATION
     Dosage: 40INJ 3G/20ML
     Route: 042
     Dates: start: 20110531, end: 20110604
  70. POTASSIUM CHLORIDE [Concomitant]
     Indication: CHEMOTHERAPY
     Dosage: 40INJ 3G/20ML
     Route: 042
     Dates: start: 20110721, end: 20110724
  71. POTASSIUM CHLORIDE [Concomitant]
     Dosage: 40INJ 3G/20ML
     Route: 042
     Dates: start: 20110804, end: 20110805
  72. POTASSIUM CHLORIDE [Concomitant]
     Dosage: 2 VIALS DAILY, 40INJ 3G/20ML
     Route: 042
     Dates: start: 20110905, end: 20110905
  73. POTASSIUM CHLORIDE [Concomitant]
     Dosage: 2 VIALS DAILY, 40 INJ 3G/20ML
     Route: 042
     Dates: start: 20110911, end: 20110913
  74. POTASSIUM CHLORIDE [Concomitant]
     Dosage: 3 VIALS DAILY, 40 INJ 3G/20ML
     Route: 042
     Dates: start: 20110913, end: 20110915
  75. POTASSIUM CHLORIDE [Concomitant]
     Dosage: 3 VIALS DAILY, 40 INJ 3G/20ML
     Route: 042
     Dates: start: 20110919, end: 20110920
  76. POTASSIUM CHLORIDE [Concomitant]
     Dosage: 3G/20ML, TOTAL DAILY DOSE 3 VIALS
     Route: 042
     Dates: start: 20110926, end: 20110926
  77. POTASSIUM CHLORIDE [Concomitant]
     Dosage: 3G/20ML, TOTAL DAILY DOSE 2 AMP
     Route: 042
     Dates: start: 20110927, end: 20110929
  78. POTASSIUM CHLORIDE [Concomitant]
     Dosage: 3G/20ML, TOTAL DAILY DOSE 6 AMP
     Route: 042
     Dates: start: 20111002, end: 20111003
  79. POTASSIUM CHLORIDE [Concomitant]
     Dosage: 40INJ 3G/20ML, DAILY 5 AMPOULES
     Route: 042
     Dates: start: 20111004, end: 20111004
  80. POTASSIUM CHLORIDE [Concomitant]
     Dosage: 40INJ 3G/20ML, DAILY 1 AMPOULE
     Route: 042
     Dates: start: 20111005, end: 20111005
  81. POTASSIUM CHLORIDE [Concomitant]
     Dosage: 40INJ 3G/20ML, DAILY 2 AMPOULES
     Route: 042
     Dates: start: 20111007, end: 20111008
  82. POTASSIUM CHLORIDE [Concomitant]
     Dosage: 40INJ 3G/20ML, DAILY 2 AMPOULES
     Route: 042
     Dates: start: 20111024, end: 20111024
  83. POTASSIUM CHLORIDE [Concomitant]
     Dosage: 40INJ 3G/20ML, DAILY 1 AMPOULE
     Route: 042
     Dates: start: 20111025, end: 20111025
  84. POTASSIUM CHLORIDE [Concomitant]
     Dosage: 40INJ 3G/20ML, DAILY 2 AMPOULES
     Route: 042
     Dates: start: 20111027, end: 20111027
  85. POTASSIUM CHLORIDE [Concomitant]
     Dosage: 40INJ 3G/20ML, 1MG DAILY
     Route: 042
     Dates: start: 20111028, end: 20111104
  86. PHENIRAMINE [Concomitant]
     Indication: PREMEDICATION
     Dosage: 4MG/2ML 2ML
     Route: 042
     Dates: start: 20110530, end: 20110530
  87. PHENIRAMINE [Concomitant]
     Indication: PLATELET TRANSFUSION
     Dosage: 4MG/2ML 2ML
     Route: 042
     Dates: start: 20110609, end: 20110611
  88. PHENIRAMINE [Concomitant]
     Indication: PREMEDICATION
     Dosage: 4MG/2ML 2ML
     Route: 042
     Dates: start: 20110613, end: 20110613
  89. PHENIRAMINE [Concomitant]
     Dosage: 4MG/2ML 2ML
     Route: 042
     Dates: start: 20110615, end: 20110615
  90. PHENIRAMINE [Concomitant]
     Dosage: 4MG/2ML 2ML
     Route: 042
     Dates: start: 20110617, end: 20110617
  91. PHENIRAMINE [Concomitant]
     Dosage: 4MG/2ML, TOTAL DAILY DOSE: 4MG
     Route: 042
     Dates: start: 20110924, end: 20110928
  92. PHENIRAMINE [Concomitant]
     Dosage: 4MG/2ML, TOTAL DAILY DOSE 4MG
     Route: 042
     Dates: start: 20110929, end: 20110929
  93. SEPTRIN [Concomitant]
     Indication: PROPHYLAXIS
     Route: 048
     Dates: start: 20110328, end: 20110525
  94. SEPTRIN [Concomitant]
     Indication: PNEUMOCYSTIS JIROVECII PNEUMONIA
  95. ALOXI [Concomitant]
     Indication: PROPHYLAXIS OF NAUSEA AND VOMITING
     Dosage: 0.25 MG DAILY
     Route: 042
     Dates: start: 20110525, end: 20110525
  96. ENDOXAN [Concomitant]
     Indication: B-CELL LYMPHOMA
     Dosage: 500MG INJ 500MG, 800MG DAILY
     Route: 042
     Dates: start: 20110525, end: 20110525
  97. VINCRISTINE PHARMACHEMIE [Concomitant]
     Indication: B-CELL LYMPHOMA
     Dosage: 1.5 MG DAILY
     Route: 042
     Dates: start: 20110525, end: 20110525
  98. MABTHERA [Concomitant]
     Indication: B-CELL LYMPHOMA
     Dosage: 10MG/ML 50ML, 100 ML DAILY
     Route: 042
     Dates: start: 20110525, end: 20110525
  99. PARIET [Concomitant]
     Indication: GASTRIC ULCER
     Dosage: 10 MG DAILY
     Route: 048
     Dates: start: 20110525, end: 20110525
  100. EMEND [Concomitant]
     Indication: PROPHYLAXIS OF NAUSEA AND VOMITING
     Dosage: 80 MG DAILY
     Route: 048
     Dates: start: 20110527, end: 20110527
  101. NISORONE [Concomitant]
     Indication: B-CELL LYMPHOMA
     Dosage: 100 MG DAILY
     Route: 048
     Dates: start: 20110525, end: 20110529
  102. MEGESTROL ACETATE [Concomitant]
     Indication: DECREASED APPETITE
     Dosage: 1 PACK
     Route: 048
     Dates: start: 20110529, end: 20110529
  103. SODIUM BICARBONATE [Concomitant]
     Indication: GASTRIC ULCER
     Dosage: 3 MG DAILY
     Route: 048
     Dates: start: 20110529, end: 20110627
  104. GASTER [Concomitant]
     Indication: PROPHYLAXIS AGAINST GASTROINTESTINAL ULCER
     Dosage: 20MG(VIAL) DAILY
     Route: 042
     Dates: start: 20110616, end: 20110618
  105. GASTER [Concomitant]
     Indication: PROPHYLAXIS
     Dosage: 20MG(VIAL) DAILY
     Route: 042
     Dates: start: 20111003, end: 20111012
  106. CYMEVENE [Concomitant]
     Indication: CYTOMEGALOVIRUS COLITIS
     Dosage: 400 MG DAILY
     Route: 042
     Dates: start: 20110616, end: 20110618
  107. CYMEVENE [Concomitant]
     Indication: CYTOMEGALOVIRUS COLITIS
     Dosage: 200 MG DAILY DOSE
     Route: 042
     Dates: start: 20110619, end: 20110703
  108. MVH [Concomitant]
     Indication: VITAMIN SUPPLEMENTATION
     Dosage: 5 ML DAILY
     Route: 042
     Dates: start: 20110617, end: 20110624
  109. MVH [Concomitant]
     Dosage: 5 ML DAILY
     Route: 042
     Dates: start: 20110630, end: 20110704
  110. THIAMINE HCL [Concomitant]
     Indication: VITAMIN SUPPLEMENTATION
     Dosage: 100 MG DAILY
     Route: 042
     Dates: start: 20110617, end: 20110624
  111. SEPTRIN [Concomitant]
     Indication: PROPHYLAXIS
     Route: 048
     Dates: start: 20110713, end: 20110720
  112. SEPTRIN [Concomitant]
     Indication: PNEUMOCYSTIS JIROVECII PNEUMONIA
  113. TAMIPOOL [Concomitant]
     Indication: VITAMIN SUPPLEMENTATION
     Dosage: 1 VIAL
     Route: 042
     Dates: start: 20110720, end: 20110724
  114. TAMIPOOL [Concomitant]
     Dosage: TOTALY DAILY DOSE 1 AMP
     Route: 042
     Dates: start: 20111001, end: 20111001
  115. TAMIPOOL [Concomitant]
     Dosage: 1 VIAL
     Route: 042
     Dates: start: 20111006, end: 20111006
  116. TAMIPOOL [Concomitant]
     Dosage: 1 VIAL DAILY
     Dates: start: 20110812
  117. THIAMINE [Concomitant]
     Indication: VITAMIN SUPPLEMENTATION
     Dosage: 50MG/2ML, 50 MG DAILY
     Route: 042
     Dates: start: 20110721, end: 20110724
  118. CENTRUM [Concomitant]
     Indication: VITAMIN SUPPLEMENTATION
     Route: 048
     Dates: start: 20110725
  119. K-CONTIN CONTINUS [Concomitant]
     Indication: MINERAL SUPPLEMENTATION
     Dosage: 1800 MG DAILY
     Route: 048
     Dates: start: 20110727, end: 20110802
  120. K-CONTIN CONTINUS [Concomitant]
     Dosage: 3600 MG DAILY DOSE
     Route: 048
     Dates: start: 20110803, end: 20110810
  121. K-CONTIN CONTINUS [Concomitant]
     Dosage: 2400 MG DAILY DOSE
     Route: 048
     Dates: start: 20110811
  122. K-CONTIN CONTINUS [Concomitant]
     Dosage: 1800 MG DAILY
     Route: 048
     Dates: start: 20110902, end: 20110902

REACTIONS (23)
  - Neutropenia [Recovered/Resolved]
  - Neutropenia [Recovered/Resolved]
  - Depressed mood [Not Recovered/Not Resolved]
  - Diarrhoea [Recovered/Resolved]
  - Urinary tract infection [Recovered/Resolved]
  - Cytomegalovirus colitis [Recovered/Resolved]
  - Anaemia [Recovered/Resolved]
  - Hyponatraemia [Recovering/Resolving]
  - Osteoporosis [Recovering/Resolving]
  - Urinary tract infection [Recovered/Resolved]
  - Hyperbilirubinaemia [Recovered/Resolved]
  - Jaundice [Recovered/Resolved]
  - Pneumonia fungal [Recovering/Resolving]
  - Pneumothorax [Recovered/Resolved]
  - Herpes zoster [Recovered/Resolved]
  - Delirium [Not Recovered/Not Resolved]
  - Immune reconstitution inflammatory syndrome [Unknown]
  - AIDS dementia complex [Unknown]
  - Device related sepsis [Recovered/Resolved]
  - Clostridium difficile colitis [Recovered/Resolved]
  - Hypoalbuminaemia [Recovered/Resolved]
  - Hypoalbuminaemia [Recovered/Resolved]
  - Shock [Recovered/Resolved]
